FAERS Safety Report 8495104-0 (Version None)
Quarter: 2012Q3

REPORT INFORMATION
  Report Type: 
  Country: None (occurrence: None)
  Receive Date: 20120709
  Receipt Date: 20120629
  Transmission Date: 20120928
  Serious: Yes (Hospitalization)
  Sender: FDA-Public Use
  Company Number: US-JNJFOC-20120700836

PATIENT
  Sex: Male
  Weight: 35.4 kg

DRUGS (7)
  1. URSODIOL [Concomitant]
  2. AZATHIOPRINE [Concomitant]
  3. INFLIXIMAB, RECOMBINANT [Suspect]
     Indication: INFLAMMATORY BOWEL DISEASE
     Route: 042
     Dates: start: 20110801
  4. ANTIBIOTIC [Concomitant]
     Indication: INFLAMMATORY BOWEL DISEASE
  5. OMEPRAZOLE [Concomitant]
  6. MESALAMINE [Concomitant]
  7. PREDNISONE [Concomitant]

REACTIONS (1)
  - INFLAMMATORY BOWEL DISEASE [None]
